FAERS Safety Report 8759638 (Version 2)
Quarter: 2013Q2

REPORT INFORMATION
  Report Type: Report from Study
  Country: DE (occurrence: DE)
  Receive Date: 20120829
  Receipt Date: 20130516
  Transmission Date: 20140414
  Serious: Yes (Hospitalization)
  Sender: FDA-Public Use
  Company Number: DE-UCBSA-017520

PATIENT
  Sex: Female
  Weight: 65 kg

DRUGS (19)
  1. CERTOLIZUMAB PEGOL [Suspect]
     Indication: RHEUMATOID ARTHRITIS
     Dosage: 200 MG, NBR OF DOSES: 9
     Route: 058
     Dates: start: 20100430, end: 20110201
  2. METEX [Concomitant]
     Indication: RHEUMATOID ARTHRITIS
     Dosage: SUFFICIENT QUANTITY
     Dates: start: 20050404
  3. METEX [Concomitant]
     Indication: RHEUMATOID ARTHRITIS
     Dosage: QS
     Dates: start: 200605
  4. PREDNISOLONE [Concomitant]
     Indication: RHEUMATOID ARTHRITIS
     Dates: start: 200007
  5. TRAMADOLOR [Concomitant]
     Indication: RHEUMATOID ARTHRITIS
     Dosage: 50-100 MG,
     Dates: start: 20100701, end: 201112
  6. TRAMADOLOR [Concomitant]
     Indication: RHEUMATOID ARTHRITIS
  7. TEBESIUM [Concomitant]
     Indication: PULMONARY TUBERCULOSIS
     Dates: start: 20100505, end: 201102
  8. DECORTIN [Concomitant]
     Dosage: PER DAY
  9. DECORTIN [Concomitant]
     Dosage: 5MG;QAM
  10. METHOTREXATE [Concomitant]
     Route: 058
  11. FOLSAN [Concomitant]
     Dosage: 5MG; WEEKLY
  12. FOLSAN [Concomitant]
     Dosage: 10MG;QAM
  13. PANTOZOL [Concomitant]
     Dosage: 40MG
  14. PANTOZOL [Concomitant]
     Dates: start: 20111007, end: 201110
  15. CALCIUM [Concomitant]
  16. MAGNESIUM [Concomitant]
  17. ARCOXIA [Concomitant]
     Indication: RHEUMATOID ARTHRITIS
     Dates: start: 200703
  18. FOLSAURE [Concomitant]
     Indication: DRUG TOXICITY PROPHYLAXIS
     Dosage: QS
     Dates: start: 20050414
  19. LEDERLON [Concomitant]
     Indication: RHEUMATOID ARTHRITIS
     Dates: start: 20100630, end: 20100630

REACTIONS (1)
  - Ophthalmic herpes zoster [Recovering/Resolving]
